FAERS Safety Report 4856018-8 (Version None)
Quarter: 2005Q4

REPORT INFORMATION
  Report Type: 
  Country: None (occurrence: None)
  Receive Date: 20051216
  Receipt Date: 20051208
  Transmission Date: 20060501
  Serious: Yes (Death)
  Sender: FDA-Public Use
  Company Number: US-JNJFOC-20051202510

PATIENT
  Sex: Female
  Weight: 54.43 kg

DRUGS (1)
  1. FENTANYL [Suspect]
     Indication: CANCER PAIN
     Route: 062
     Dates: start: 20051205, end: 20051207

REACTIONS (1)
  - LUNG NEOPLASM MALIGNANT [None]
